FAERS Safety Report 7141576-3 (Version None)
Quarter: 2010Q4

REPORT INFORMATION
  Report Type: 
  Country: None (occurrence: None)
  Receive Date: 20101207
  Receipt Date: 20101203
  Transmission Date: 20110411
  Serious: Yes (Death, Other)
  Sender: FDA-Public Use
  Company Number: PHHY2010JP80394

PATIENT
  Age: 25 Year
  Sex: Female

DRUGS (4)
  1. CYCLOSPORINE [Suspect]
     Indication: ALLOGENIC BONE MARROW TRANSPLANTATION THERAPY
     Dosage: UNK
  2. CYCLOSPORINE [Suspect]
     Indication: GRAFT VERSUS HOST DISEASE
  3. CYCLOPHOSPHAMIDE [Concomitant]
     Indication: ALLOGENIC BONE MARROW TRANSPLANTATION THERAPY
  4. PREDNISOLONE [Concomitant]
     Indication: ALLOGENIC BONE MARROW TRANSPLANTATION THERAPY

REACTIONS (9)
  - CHRONIC GRAFT VERSUS HOST DISEASE [None]
  - CONDITION AGGRAVATED [None]
  - DYSPHAGIA [None]
  - GASTRIC TUBE RECONSTRUCTION [None]
  - GINGIVAL CANCER [None]
  - GINGIVAL OPERATION [None]
  - OESOPHAGEAL SQUAMOUS CELL CARCINOMA STAGE IV [None]
  - OESOPHAGECTOMY [None]
  - SQUAMOUS CELL CARCINOMA [None]
